FAERS Safety Report 5157991-3 (Version None)
Quarter: 2006Q4

REPORT INFORMATION
  Report Type: 
  Country: None (occurrence: None)
  Receive Date: 20061127
  Receipt Date: 20000328
  Transmission Date: 20070319
  Serious: Yes (Life-Threatening, Hospitalization)
  Sender: FDA-Public Use
  Company Number: FR-BOEHRINGER INGELHEIM PHARMACEUTICALS, INC.-2000-FF-S0220

PATIENT
  Sex: Male
  Weight: 0.97 kg

DRUGS (6)
  1. VIRAMUNE [Suspect]
     Indication: VERTICAL INFECTION TRANSMISSION
     Route: 048
     Dates: start: 20000324, end: 20000324
  2. RETROVIR [Concomitant]
     Indication: VERTICAL INFECTION TRANSMISSION
     Dosage: 15 MG
     Route: 042
     Dates: start: 20000301, end: 20000301
  3. COMBIVIR [Concomitant]
     Indication: HIV INFECTION
     Route: 015
     Dates: end: 20000323
  4. LOXEN [Concomitant]
     Indication: HYPERTENSION
     Route: 015
     Dates: end: 20000323
  5. ALDOMET [Concomitant]
     Indication: HYPERTENSION
     Route: 015
     Dates: end: 20000323
  6. TENORMIN [Concomitant]
     Indication: HYPERTENSION
     Route: 015
     Dates: end: 20000323

REACTIONS (5)
  - ANAEMIA [None]
  - HYPERTONIA NEONATAL [None]
  - ILEUS [None]
  - NEUTROPENIA [None]
  - THROMBOCYTOPENIA [None]
